FAERS Safety Report 9519859 (Version 3)
Quarter: 2013Q3

REPORT INFORMATION
  Report Type: Spontaneous
  Country: BR (occurrence: BR)
  Receive Date: 20130912
  Receipt Date: 20130924
  Transmission Date: 20140515
  Serious: Yes (Other)
  Sender: FDA-Public Use
  Company Number: BR-009507513-1303BRA003027

PATIENT
  Age: 32 Year
  Sex: Female
  Weight: 82 kg

DRUGS (2)
  1. MERCILON CONTI [Suspect]
     Indication: CONTRACEPTION
     Dosage: UNK, QD
     Route: 048
     Dates: start: 201203
  2. MERCILON CONTI [Suspect]
     Dosage: 75 MICROGRAM, UNK
     Route: 048

REACTIONS (7)
  - Mammoplasty [Recovered/Resolved]
  - Swelling [Recovered/Resolved]
  - Abnormal withdrawal bleeding [Not Recovered/Not Resolved]
  - Amenorrhoea [Not Recovered/Not Resolved]
  - Abdominal pain [Recovered/Resolved]
  - Drug administration error [Unknown]
  - Drug administration error [Unknown]
